FAERS Safety Report 11827109 (Version 3)
Quarter: 2016Q1

REPORT INFORMATION
  Report Type: Report from Study
  Country: DE (occurrence: DE)
  Receive Date: 20151211
  Receipt Date: 20160201
  Transmission Date: 20160525
  Serious: Yes (Hospitalization)
  Sender: FDA-Public Use
  Company Number: DE-TEVA-615064GER

PATIENT
  Age: 50 Year
  Sex: Female
  Weight: 95 kg

DRUGS (4)
  1. MYOCET [Suspect]
     Active Substance: DOXORUBICIN
     Indication: BREAST CANCER FEMALE
     Dosage: LAST DOSE PRIOR TO SAE: 01-OCT-2015, TEMPORAILY INTERRUPTED ON 02-OCT-2015, RESTARTED 28-OCT-2015
     Route: 042
     Dates: start: 20150819
  2. PACLITAXEL. [Suspect]
     Active Substance: PACLITAXEL
     Indication: BREAST CANCER FEMALE
     Dosage: LAST DOSE PRIOR TO SAE: 01-OCT-2015, TEMPORAILY INTERRUPTED ON 02-OCT-2015, RESTARTED 28-OCT-2015
     Route: 042
     Dates: start: 20150819
  3. TRASTUZUMAB [Suspect]
     Active Substance: TRASTUZUMAB
     Indication: BREAST CANCER FEMALE
     Dosage: LAST DOSE PRIOR TO SAE: 01-OCT-2015, TEMPORAILY INTERRUPTED ON 02-OCT-2015, RESTARTED 28-OCT-2015
     Route: 042
     Dates: start: 20150819
  4. PERTUZUMAB [Suspect]
     Active Substance: PERTUZUMAB
     Dosage: LAST DOSE PRIOR TO SAE: 01-OCT-2015, TEMPORAILY INTERRUPTED ON 02-OCT-2015, RESTARTED 28-OCT-2015
     Route: 042
     Dates: start: 20150819

REACTIONS (1)
  - Cerebral ischaemia [Recovered/Resolved]

NARRATIVE: CASE EVENT DATE: 20151001
